FAERS Safety Report 20124949 (Version 2)
Quarter: 2021Q4

REPORT INFORMATION
  Report Type: Other
  Country: US (occurrence: None)
  Receive Date: 20211129
  Receipt Date: 20211213
  Transmission Date: 20220303
  Serious: Yes (Other)
  Sender: FDA-Public Use
  Company Number: US-ROCHE-2963118

PATIENT
  Age: 67 Year
  Sex: Female
  Weight: 71.732 kg

DRUGS (6)
  1. OCREVUS [Suspect]
     Active Substance: OCRELIZUMAB
     Indication: Relapsing multiple sclerosis
     Dosage: DATE OF TREATMENT: 28/MAR/2019, 19/APR/2019, 08/SEP/2019, 24/OCT/2019, 27/APR/2020, 04/NOV/2020, 13/
     Route: 042
     Dates: start: 20190328
  2. OCREVUS [Suspect]
     Active Substance: OCRELIZUMAB
     Indication: Multiple sclerosis
  3. VITAMIN D3 [Concomitant]
     Active Substance: CHOLECALCIFEROL
     Route: 048
  4. FLONASE [Concomitant]
     Active Substance: FLUTICASONE PROPIONATE
     Indication: Asthma
     Dosage: TAKES 1 SPRAY PER NOSTRIL AS NEEDED
     Route: 045
  5. COMBIVENT [Concomitant]
     Active Substance: ALBUTEROL SULFATE\IPRATROPIUM BROMIDE
     Indication: Asthma
     Dosage: TAKES 1 INHALATION AS NEEDED
     Route: 055
  6. CLARITIN [Concomitant]
     Active Substance: LORATADINE
     Indication: Asthma
     Route: 048

REACTIONS (6)
  - COVID-19 [Recovered/Resolved]
  - Loss of consciousness [Recovered/Resolved]
  - Head injury [Recovered/Resolved]
  - Blood potassium decreased [Recovered/Resolved]
  - Multiple sclerosis relapse [Not Recovered/Not Resolved]
  - Pneumonia [Recovered/Resolved]

NARRATIVE: CASE EVENT DATE: 20210801
